FAERS Safety Report 5117770-X (Version None)
Quarter: 2006Q3

REPORT INFORMATION
  Report Type: 
  Country: None (occurrence: None)
  Receive Date: 20060929
  Receipt Date: 20060926
  Transmission Date: 20061208
  Serious: Yes (Hospitalization)
  Sender: FDA-Public Use
  Company Number: GB-GLAXOSMITHKLINE-B0440098A

PATIENT
  Age: 58 Year
  Sex: Female
  Weight: 63 kg

DRUGS (4)
  1. CO-AMOXICLAV [Suspect]
     Indication: OTITIS EXTERNA
     Dosage: 750MG THREE TIMES PER DAY
     Route: 048
     Dates: start: 20060731, end: 20060806
  2. NICOTINE [Concomitant]
     Indication: SMOKING CESSATION THERAPY
     Route: 048
     Dates: start: 20060411
  3. OTOMIZE [Concomitant]
     Route: 061
     Dates: start: 20060731, end: 20060806
  4. ALBUTEROL SPIROS [Concomitant]
     Indication: CHRONIC OBSTRUCTIVE PULMONARY DISEASE
     Route: 055
     Dates: start: 20060411

REACTIONS (3)
  - CHOLESTASIS [None]
  - JAUNDICE [None]
  - LIVER DISORDER [None]
